FAERS Safety Report 8562028-X (Version None)
Quarter: 2012Q3

REPORT INFORMATION
  Report Type: 
  Country: None (occurrence: None)
  Receive Date: 20120802
  Receipt Date: 20120727
  Transmission Date: 20120928
  Serious: Yes (Other)
  Sender: FDA-Public Use
  Company Number: JP-GILEAD-2012-0058134

PATIENT
  Sex: Female

DRUGS (7)
  1. WARFARIN [Concomitant]
     Route: 048
  2. PLAVIX [Concomitant]
     Indication: ANGINA PECTORIS
     Dosage: 75MG PER DAY
     Route: 048
  3. ASPIRIN [Concomitant]
     Indication: ANGINA PECTORIS
     Dosage: 100MG PER DAY
     Route: 048
  4. DIART [Concomitant]
     Indication: CARDIAC FAILURE
     Dosage: 30MG PER DAY
     Route: 048
     Dates: start: 20120623, end: 20120705
  5. AMBRISENTAN [Suspect]
     Indication: PULMONARY ARTERIAL HYPERTENSION
     Dosage: 2.5MG PER DAY
     Route: 048
     Dates: start: 20120606, end: 20120709
  6. AMBRISENTAN [Suspect]
     Dosage: 1.25MG PER DAY
     Route: 048
     Dates: start: 20120605, end: 20120605
  7. RABEPRAZOLE SODIUM [Concomitant]
     Indication: GASTROOESOPHAGEAL REFLUX DISEASE
     Dosage: 10MG PER DAY
     Route: 048

REACTIONS (7)
  - BLOOD ALKALINE PHOSPHATASE INCREASED [None]
  - ASPARTATE AMINOTRANSFERASE INCREASED [None]
  - HEPATIC FUNCTION ABNORMAL [None]
  - LEUCINE AMINOPEPTIDASE INCREASED [None]
  - EOSINOPHIL COUNT INCREASED [None]
  - ALANINE AMINOTRANSFERASE INCREASED [None]
  - GAMMA-GLUTAMYLTRANSFERASE INCREASED [None]
